FAERS Safety Report 5371456-5 (Version None)
Quarter: 2007Q2

REPORT INFORMATION
  Report Type: 
  Country: None (occurrence: None)
  Receive Date: 20070622
  Receipt Date: 20070618
  Transmission Date: 20071010
  Serious: Yes (Hospitalization)
  Sender: FDA-Public Use
  Company Number: 2007SP012131

PATIENT
  Sex: Female

DRUGS (5)
  1. ALBUTEROL [Suspect]
     Indication: ASTHMA
     Dosage: PO
     Route: 048
  2. VICODIN [Concomitant]
  3. FLEXERIL [Concomitant]
  4. WELLBUTRIN [Concomitant]
  5. ACTOS [Concomitant]

REACTIONS (2)
  - BRONCHITIS [None]
  - DYSPHONIA [None]
